FAERS Safety Report 7689314-X (Version None)
Quarter: 2011Q3

REPORT INFORMATION
  Report Type: 
  Country: None (occurrence: None)
  Receive Date: 20110817
  Receipt Date: 20110810
  Transmission Date: 20111222
  Serious: Yes (Death, Other)
  Sender: FDA-Public Use
  Company Number: US-BAYER-201041704NA

PATIENT
  Age: 69 Year
  Sex: Male
  Weight: 79.819 kg

DRUGS (14)
  1. AMICAR [Concomitant]
     Dosage: 10 GM
     Dates: start: 20000626
  2. IMDUR [Concomitant]
     Dosage: 30 MG
     Route: 048
  3. ACETYLSALICYLIC ACID SRT [Concomitant]
     Dosage: 325 MG
     Route: 048
  4. HEPARIN [Concomitant]
     Dosage: 24,000 UNITS
     Route: 042
     Dates: start: 20000624
  5. PENTOBARBITAL SODIUM [Concomitant]
     Dosage: 100 MG, UNK
     Route: 030
     Dates: start: 20000620
  6. LOPRESSOR [Concomitant]
  7. VERSED [Concomitant]
     Dosage: 2 MG, UNK
     Route: 042
     Dates: start: 20000620
  8. NITROGLYCERIN [Concomitant]
     Dosage: 0.2 MG/H, QD
     Route: 062
  9. PRAVACHOL [Concomitant]
     Dosage: 20 MG, UNK
     Route: 048
  10. TRASYLOL [Suspect]
     Indication: CORONARY ARTERY BYPASS
     Dosage: UNK
     Route: 042
     Dates: start: 20000626
  11. NITROGLYCERIN [Concomitant]
     Dosage: UNK
     Route: 042
     Dates: start: 20000601
  12. NORVASC [Concomitant]
     Route: 048
  13. COUMADIN [Concomitant]
     Dosage: 2.6 MG
     Route: 048
  14. PROTAMINE [Concomitant]
     Dosage: 360 MG
     Route: 042
     Dates: start: 20000626, end: 20000626

REACTIONS (12)
  - MULTI-ORGAN FAILURE [None]
  - ANXIETY [None]
  - DEATH [None]
  - CARDIAC FAILURE [None]
  - RENAL IMPAIRMENT [None]
  - EMOTIONAL DISTRESS [None]
  - RENAL FAILURE [None]
  - RENAL INJURY [None]
  - FEAR [None]
  - PAIN [None]
  - STRESS [None]
  - UNEVALUABLE EVENT [None]
